FAERS Safety Report 13441390 (Version 1)
Quarter: 2017Q2

REPORT INFORMATION
  Report Type: Spontaneous
  Country: US (occurrence: US)
  Receive Date: 20170414
  Receipt Date: 20170414
  Transmission Date: 20170830
  Serious: Yes (Other)
  Sender: FDA-Public Use
  Company Number: US-ROCHE-1878397

PATIENT
  Age: 58 Year
  Sex: Female

DRUGS (2)
  1. FLUVOXAMINE [Suspect]
     Active Substance: FLUVOXAMINE
     Indication: PRODUCT USED FOR UNKNOWN INDICATION
     Route: 048
  2. ESBRIET [Suspect]
     Active Substance: PIRFENIDONE
     Indication: IDIOPATHIC PULMONARY FIBROSIS
     Route: 048
     Dates: start: 201411

REACTIONS (13)
  - Rib fracture [Recovering/Resolving]
  - Decreased appetite [Unknown]
  - Nausea [Not Recovered/Not Resolved]
  - Dizziness [Recovering/Resolving]
  - Rash [Recovered/Resolved]
  - Dizziness [Unknown]
  - Multiple injuries [Unknown]
  - Vomiting [Unknown]
  - Upper limb fracture [Recovering/Resolving]
  - Burning sensation [Recovering/Resolving]
  - Bronchial disorder [Unknown]
  - Tibia fracture [Recovering/Resolving]
  - Fatigue [Recovering/Resolving]

NARRATIVE: CASE EVENT DATE: 201411
